FAERS Safety Report 19621393 (Version 1)
Quarter: 2021Q3

REPORT INFORMATION
  Report Type: Spontaneous
  Country: US (occurrence: US)
  Receive Date: 20210728
  Receipt Date: 20210728
  Transmission Date: 20211014
  Serious: No
  Sender: FDA-Public Use
  Company Number: None

PATIENT
  Age: 82 Year
  Sex: Male
  Weight: 246 kg

DRUGS (2)
  1. ACETAMINOPHEN /HYDROCODONE (HYDROCODONE 5MG/ACETAMINOPHEN 325MG TAB) [Suspect]
     Active Substance: ACETAMINOPHEN\HYDROCODONE
     Indication: PAIN
     Dates: start: 20210403, end: 20210407
  2. PENICILLIN (PENICILLIN G K 400000 UNT TAB) [Suspect]
     Active Substance: PENICILLIN G POTASSIUM
     Indication: CYSTITIS
     Dates: start: 20210403, end: 20210407

REACTIONS (2)
  - Delirium [None]
  - Diabetic ketoacidosis [None]

NARRATIVE: CASE EVENT DATE: 20210512
